FAERS Safety Report 4551715-6 (Version None)
Quarter: 2005Q1

REPORT INFORMATION
  Report Type: 
  Country: None (occurrence: None)
  Receive Date: 20050113
  Receipt Date: 20041229
  Transmission Date: 20050727
  Serious: Yes (Other)
  Sender: FDA-Public Use
  Company Number: FR-JNJFOC-20050101701

PATIENT
  Age: 37 Year
  Sex: Female

DRUGS (2)
  1. ACETAMINOPHEN AND TRAMADOL HCL [Suspect]
     Indication: MIGRAINE
     Route: 049
  2. ZOMIG [Suspect]
     Indication: MIGRAINE
     Route: 049

REACTIONS (4)
  - CHEST PAIN [None]
  - DIZZINESS [None]
  - PARAESTHESIA [None]
  - WHEEZING [None]
